FAERS Safety Report 11584618 (Version 1)
Quarter: 2015Q4

REPORT INFORMATION
  Report Type: Spontaneous
  Country: US (occurrence: US)
  Receive Date: 20151001
  Receipt Date: 20151001
  Transmission Date: 20160304
  Serious: No
  Sender: FDA-Public Use
  Company Number: US-BAYER-2015-434266

PATIENT
  Age: 88 Year
  Sex: Female
  Weight: 74.83 kg

DRUGS (1)
  1. MIRALAX [Suspect]
     Active Substance: POLYETHYLENE GLYCOL 3350
     Indication: CONSTIPATION
     Dosage: 1 DF, QD
     Route: 048
     Dates: start: 2012

REACTIONS (3)
  - Flatulence [Unknown]
  - Abdominal pain upper [Unknown]
  - Product use issue [None]

NARRATIVE: CASE EVENT DATE: 20150929
